FAERS Safety Report 17523737 (Version 1)
Quarter: 2020Q1

REPORT INFORMATION
  Report Type: Spontaneous
  Country: GB (occurrence: GB)
  Receive Date: 20200310
  Receipt Date: 20200310
  Transmission Date: 20200409
  Serious: Yes (Hospitalization, Disabling)
  Sender: FDA-Public Use
  Company Number: GB-TEVA-2020-GB-1196294

PATIENT
  Age: 59 Year
  Sex: Female

DRUGS (16)
  1. MIRTAZAPINE. [Suspect]
     Active Substance: MIRTAZAPINE
     Dosage: NIGHT 15 MG
     Route: 048
  2. FLUCONAZOLE. [Concomitant]
     Active Substance: FLUCONAZOLE
     Dosage: ONE TO BE TAKEN IMMEDIATELY 150 MG
     Dates: start: 20190625, end: 20190625
  3. PROPRANOLOL [Concomitant]
     Active Substance: PROPRANOLOL HYDROCHLORIDE
     Dosage: INITIALLY ONCE DAILY AS TOLERATED. 40 MG
  4. MONTELUKAST [Concomitant]
     Active Substance: MONTELUKAST SODIUM
     Dosage: NIGHT 10 MG
     Route: 048
  5. SALBUTAMOL [Concomitant]
     Active Substance: ALBUTEROL
     Dosage: FOUR TIMES DAILY 100 MICROGRAM
     Route: 055
  6. OMEPRAZOLE. [Concomitant]
     Active Substance: OMEPRAZOLE
     Dosage: 20 MG
  7. VENLAFAXINE [Suspect]
     Active Substance: VENLAFAXINE HYDROCHLORIDE
     Dosage: 150 MG
     Route: 048
  8. CEFALEXIN [Concomitant]
     Active Substance: CEPHALEXIN
     Dosage: 1000 MG
     Dates: start: 20190617
  9. ZOPICLONE [Concomitant]
     Active Substance: ZOPICLONE
     Dosage: NIGHT 7.5 MG
  10. URSODEOXYCHOLIC ACID [Concomitant]
     Active Substance: URSODIOL
     Dosage: 900 MG
  11. FOSTAIR [Concomitant]
     Active Substance: BECLOMETHASONE\FORMOTEROL
     Dosage: 100MICROGRAMS/DOSE / 6MICROGRAMS/DOSE. PUFFS 4 DOSAGE FORMS
     Route: 055
  12. DICLOFENAC [Concomitant]
     Active Substance: DICLOFENAC
     Dosage: USING UP TO THREE TIMES DAILY AS NECESSARY
  13. BRALTUS [Concomitant]
     Active Substance: TIOTROPIUM BROMIDE
     Dosage: 10 MICROGRAM
     Route: 055
  14. CARBOCISTEINE [Concomitant]
     Active Substance: CARBOCYSTEINE
     Dosage: 250MG/5ML 30 ML
     Route: 048
  15. COCODAMOL [Concomitant]
     Active Substance: ACETAMINOPHEN\CODEINE PHOSPHATE
     Dosage: 30MG/500MG 4 DOSAGE FORMS
  16. ZAPAIN [Concomitant]
     Active Substance: ACETAMINOPHEN\CODEINE PHOSPHATE
     Dosage: 30MG/500MG 4 DOSAGE FORMS

REACTIONS (1)
  - Parkinsonism [Recovered/Resolved]
